FAERS Safety Report 23874829 (Version 2)
Quarter: 2024Q3

REPORT INFORMATION
  Report Type: Spontaneous
  Country: US (occurrence: US)
  Receive Date: 20240520
  Receipt Date: 20240808
  Transmission Date: 20241016
  Serious: No
  Sender: OTSUKA
  Company Number: US-OTSUKA-2024_009178

PATIENT
  Age: 4 Decade
  Sex: Male

DRUGS (2)
  1. ABILIFY ASIMTUFII [Suspect]
     Active Substance: ARIPIPRAZOLE
     Indication: Bipolar disorder
     Dosage: 960 MG, EVERY 2 MONTHS
     Route: 065
  2. ABILIFY MAINTENA [Suspect]
     Active Substance: ARIPIPRAZOLE
     Indication: Bipolar disorder
     Dosage: 400 MG
     Route: 065

REACTIONS (7)
  - Feeling abnormal [Unknown]
  - Depressed mood [Unknown]
  - Insomnia [Unknown]
  - Nausea [Recovered/Resolved]
  - Sedation [Unknown]
  - Somnolence [Unknown]
  - Therapy change [Unknown]
